FAERS Safety Report 9705946 (Version 1)
Quarter: 2013Q4

REPORT INFORMATION
  Report Type: Spontaneous
  Country: DE (occurrence: DE)
  Receive Date: 20131122
  Receipt Date: 20131122
  Transmission Date: 20140711
  Serious: Yes (Other)
  Sender: FDA-Public Use
  Company Number: DE-ABBVIE-13P-062-1172587-00

PATIENT
  Age: 36 Year
  Sex: Female
  Weight: 110 kg

DRUGS (1)
  1. TRENANTONE [Suspect]
     Indication: BREAST CANCER
     Route: 058
     Dates: start: 20130205

REACTIONS (3)
  - Injection site inflammation [Recovered/Resolved]
  - Injection site erythema [Not Recovered/Not Resolved]
  - Injection site abscess [Unknown]
